FAERS Safety Report 18067085 (Version 1)
Quarter: 2020Q3

REPORT INFORMATION
  Report Type: Spontaneous
  Country: GB (occurrence: GB)
  Receive Date: 20200724
  Receipt Date: 20200724
  Transmission Date: 20201103
  Serious: Yes (Other)
  Sender: FDA-Public Use
  Company Number: GB-ASCEND THERAPEUTICS US, LLC-2087713

PATIENT
  Age: 51 Year
  Sex: Female

DRUGS (3)
  1. ESTROGEL [Suspect]
     Active Substance: ESTRADIOL
  2. OESTRODOSE (ESTRADIOL)?INDICATION FOR USE: HRT [Suspect]
     Active Substance: ESTRADIOL
     Dates: start: 20191129, end: 20200625
  3. ESTROGEL [Suspect]
     Active Substance: ESTRADIOL
     Indication: HORMONE REPLACEMENT THERAPY
     Route: 065
     Dates: start: 20191129, end: 20200625

REACTIONS (4)
  - Product label on wrong product [Unknown]
  - Product substitution issue [Unknown]
  - Drug ineffective [Unknown]
  - Menopausal symptoms [Not Recovered/Not Resolved]

NARRATIVE: CASE EVENT DATE: 20191209
